FAERS Safety Report 4276217-6 (Version None)
Quarter: 2004Q1

REPORT INFORMATION
  Report Type: 
  Country: None (occurrence: None)
  Receive Date: 20040121
  Receipt Date: 20030603
  Transmission Date: 20041129
  Serious: No
  Sender: FDA-Public Use
  Company Number: US-GLAXOSMITHKLINE-A0410737A

PATIENT
  Age: 46 Year
  Sex: Male

DRUGS (7)
  1. ZIAGEN [Suspect]
     Dosage: 300MG TWICE PER DAY
     Route: 048
     Dates: start: 20021101, end: 20030401
  2. VIREAD [Concomitant]
     Indication: HIV INFECTION
  3. KALETRA [Concomitant]
     Indication: HIV INFECTION
  4. CRIXIVAN [Concomitant]
     Indication: HIV INFECTION
  5. BACTRIM DS [Concomitant]
  6. ACYCLOVIR [Concomitant]
  7. TESTOSTERONE [Concomitant]

REACTIONS (8)
  - ABDOMINAL PAIN [None]
  - DIARRHOEA [None]
  - FATIGUE [None]
  - HYPERBILIRUBINAEMIA [None]
  - NAUSEA [None]
  - PRURITUS [None]
  - RASH [None]
  - VOMITING [None]
